FAERS Safety Report 24541135 (Version 2)
Quarter: 2024Q4

REPORT INFORMATION
  Report Type: Spontaneous
  Country: US (occurrence: US)
  Receive Date: 20241023
  Receipt Date: 20241025
  Transmission Date: 20250115
  Serious: Yes (Hospitalization)
  Sender: PFIZER
  Company Number: US-PFIZER INC-202400284591

PATIENT
  Age: 96 Year
  Sex: Female

DRUGS (1)
  1. CIBINQO [Suspect]
     Active Substance: ABROCITINIB
     Dosage: 100 MG

REACTIONS (2)
  - Dizziness [Unknown]
  - Fall [Unknown]

NARRATIVE: CASE EVENT DATE: 20241017
